FAERS Safety Report 7929830-6 (Version None)
Quarter: 2011Q4

REPORT INFORMATION
  Report Type: 
  Country: None (occurrence: None)
  Receive Date: 20111121
  Receipt Date: 20111114
  Transmission Date: 20120403
  Serious: Yes (Hospitalization)
  Sender: FDA-Public Use
  Company Number: PHEH2011US009480

PATIENT
  Sex: Female

DRUGS (1)
  1. EXELON [Suspect]
     Dosage: APPLIED SIX PATCHES
     Route: 062

REACTIONS (1)
  - INCORRECT DOSE ADMINISTERED [None]
